FAERS Safety Report 23429888 (Version 1)
Quarter: 2024Q1

REPORT INFORMATION
  Report Type: Spontaneous
  Country: KR (occurrence: KR)
  Receive Date: 20240122
  Receipt Date: 20240122
  Transmission Date: 20240409
  Serious: Yes (Death, Other)
  Sender: FDA-Public Use
  Company Number: KR-009507513-2401KOR007327

PATIENT
  Age: 63 Year
  Sex: Male
  Weight: 56.9 kg

DRUGS (2)
  1. KEYTRUDA [Suspect]
     Active Substance: PEMBROLIZUMAB
     Indication: Non-small cell lung cancer
     Dosage: 2 DOSAGE FORM, QD
     Route: 042
     Dates: start: 20211102, end: 20211102
  2. CISPLATIN [Suspect]
     Active Substance: CISPLATIN
     Indication: Non-small cell lung cancer
     Dosage: 1.86 DOSAGE FORM, QD
     Route: 042
     Dates: start: 20211102, end: 20211102

REACTIONS (2)
  - Leukopenia [Fatal]
  - Cerebral infarction [Fatal]

NARRATIVE: CASE EVENT DATE: 20211109
